FAERS Safety Report 5107050-0 (Version None)
Quarter: 2006Q3

REPORT INFORMATION
  Report Type: 
  Country: None (occurrence: None)
  Receive Date: 20060913
  Receipt Date: 20060810
  Transmission Date: 20061208
  Serious: Yes (Other)
  Sender: FDA-Public Use
  Company Number: 2006RR-03289

PATIENT
  Age: 75 Year
  Sex: Female

DRUGS (1)
  1. LOSARTAN+HYDROCHLOROTHIAZIDE [Suspect]

REACTIONS (4)
  - ERYTHEMA [None]
  - HYPERKERATOSIS [None]
  - LICHENOID KERATOSIS [None]
  - RASH PAPULAR [None]
